FAERS Safety Report 5892396-9 (Version None)
Quarter: 2008Q3

REPORT INFORMATION
  Report Type: 
  Country: None (occurrence: None)
  Receive Date: 20080919
  Receipt Date: 20080919
  Transmission Date: 20090109
  Serious: Yes (Hospitalization, Other)
  Sender: FDA-Public Use
  Company Number: None

PATIENT
  Age: 23 Day
  Sex: Female
  Weight: 3.5 kg

DRUGS (1)
  1. KEPPRA [Suspect]
     Indication: CONVULSION
     Dosage: 20 MG Q12H IV BOLUS
     Route: 040
     Dates: start: 20080830, end: 20080903

REACTIONS (1)
  - LIVER FUNCTION TEST ABNORMAL [None]
